FAERS Safety Report 16548836 (Version 1)
Quarter: 2019Q3

REPORT INFORMATION
  Report Type: Spontaneous
  Country: GB (occurrence: GB)
  Receive Date: 20190709
  Receipt Date: 20190709
  Transmission Date: 20191004
  Serious: Yes (Other)
  Sender: FDA-Public Use
  Company Number: GB-MYLANLABS-2019M1063542

PATIENT
  Age: 37 Year
  Sex: Male

DRUGS (2)
  1. PREGABALIN. [Suspect]
     Active Substance: PREGABALIN
     Indication: COMPLEX REGIONAL PAIN SYNDROME
     Dosage: UNK
  2. TRAMADOL. [Suspect]
     Active Substance: TRAMADOL
     Indication: COMPLEX REGIONAL PAIN SYNDROME
     Dosage: HIGH DOSAGES

REACTIONS (5)
  - Withdrawal syndrome [Unknown]
  - Drug dependence [Unknown]
  - Feeling abnormal [Unknown]
  - Dyspnoea [Unknown]
  - Product use in unapproved indication [Unknown]
